FAERS Safety Report 14974541 (Version 1)
Quarter: 2018Q2

REPORT INFORMATION
  Report Type: Spontaneous
  Country: US (occurrence: US)
  Receive Date: 20180517
  Receipt Date: 20180517
  Transmission Date: 20180711
  Serious: Yes (Hospitalization)
  Sender: FDA-Public Use
  Company Number: None

PATIENT
  Age: 54 Year
  Sex: Female

DRUGS (8)
  1. CALTRATE +D 600/800 [Concomitant]
  2. CLOPIDOGREL [Concomitant]
     Active Substance: CLOPIDOGREL BISULFATE
  3. IBRANCE [Suspect]
     Active Substance: PALBOCICLIB
     Indication: BREAST CANCER
     Route: 048
     Dates: start: 20170428
  4. EXEMESTANE 25MG [Concomitant]
     Active Substance: EXEMESTANE
  5. NICOTROL [Concomitant]
     Active Substance: NICOTINE
  6. ASPIRIN 325MG [Concomitant]
     Active Substance: ASPIRIN
  7. PEPCID 20MG [Concomitant]
  8. METROPROLOL SUCCINATE 25MG ER [Concomitant]

REACTIONS (1)
  - Surgery [None]

NARRATIVE: CASE EVENT DATE: 20180404
